FAERS Safety Report 6210725-3 (Version None)
Quarter: 2009Q2

REPORT INFORMATION
  Report Type: 
  Country: None (occurrence: None)
  Receive Date: 20090528
  Receipt Date: 20090528
  Transmission Date: 20091009
  Serious: Yes (Hospitalization)
  Sender: FDA-Public Use
  Company Number: None

PATIENT
  Age: 88 Year
  Sex: Female
  Weight: 64.4 kg

DRUGS (9)
  1. RISPERDAL [Suspect]
     Indication: DELIRIUM
     Dosage: 0.5MG BID PO ONE DOSE
     Route: 048
  2. GLIMEPIRIDE [Concomitant]
  3. LEVOTHYROXINE [Concomitant]
  4. LISINOPRIL [Concomitant]
  5. SERTRALINE HCL [Concomitant]
  6. VERAPAMIL [Concomitant]
  7. VIT C [Concomitant]
  8. VIT D [Concomitant]
  9. ROCEPHIN [Concomitant]

REACTIONS (1)
  - ANGIOEDEMA [None]
